FAERS Safety Report 15537923 (Version 2)
Quarter: 2019Q1

REPORT INFORMATION
  Report Type: Spontaneous
  Country: US (occurrence: US)
  Receive Date: 20181022
  Receipt Date: 20190114
  Transmission Date: 20190417
  Serious: No
  Sender: FDA-Public Use
  Company Number: US-SA-2017SA211391

PATIENT
  Age: 53 Year
  Sex: Female
  Weight: 105.6 kg

DRUGS (25)
  1. TYLENOL [Concomitant]
     Active Substance: ACETAMINOPHEN
     Dosage: 1 DF,Q4H
     Route: 048
     Dates: start: 20170120
  2. RANITIDINE. [Concomitant]
     Active Substance: RANITIDINE
     Dosage: 1 DF, QD
     Route: 048
     Dates: start: 20180326
  3. FABRAZYME [Suspect]
     Active Substance: AGALSIDASE BETA
     Indication: FABRY^S DISEASE
     Dosage: 0.96 MG/KG (105 MG), Q10D
     Route: 041
     Dates: start: 20110602
  4. MONTELUKAST [Concomitant]
     Active Substance: MONTELUKAST SODIUM
     Dosage: 1 DF,QD
     Route: 048
     Dates: start: 20171013
  5. LASIX [Concomitant]
     Active Substance: FUROSEMIDE
     Dosage: 1 DF,PRN
     Route: 048
     Dates: start: 20170424
  6. LORATADINE. [Concomitant]
     Active Substance: LORATADINE
     Dosage: 10 MG, QD
     Route: 048
     Dates: start: 20170927
  7. CETIRIZINE [Concomitant]
     Active Substance: CETIRIZINE HYDROCHLORIDE
     Dosage: 1 DF,QD
     Route: 048
     Dates: start: 20170724
  8. NORMAL SALINE [Concomitant]
     Active Substance: SODIUM CHLORIDE
     Dosage: 0.9 %
     Route: 042
     Dates: start: 20180112
  9. EPIPEN [Concomitant]
     Active Substance: EPINEPHRINE
     Indication: ANAPHYLACTIC REACTION
     Dosage: .3 MG,PRN
     Route: 030
     Dates: start: 20170209
  10. VITAMIN D2 [Concomitant]
     Active Substance: ERGOCALCIFEROL
     Dosage: 1 DF,QM
     Route: 048
     Dates: start: 20170120
  11. ORPHENADRINE CITRATE. [Concomitant]
     Active Substance: ORPHENADRINE CITRATE
     Dosage: 1 DF,BID
     Route: 048
     Dates: start: 20171018
  12. DIPHENHYDRAMINE. [Concomitant]
     Active Substance: DIPHENHYDRAMINE
     Indication: PREMEDICATION
     Dosage: 50 MG,UNK
     Route: 048
     Dates: start: 20170209
  13. LISINOPRIL. [Concomitant]
     Active Substance: LISINOPRIL
     Dosage: 5 MG, QD
     Route: 048
     Dates: start: 20110526
  14. NEXIUM [Concomitant]
     Active Substance: ESOMEPRAZOLE MAGNESIUM
     Dosage: 1 DF,QD
     Route: 048
     Dates: start: 20110526
  15. HEPARIN [Concomitant]
     Active Substance: HEPARIN SODIUM
     Indication: FLUSHING
     Dosage: UNK UNK,UNK
     Route: 042
     Dates: start: 20170209
  16. ACICLOVIR [Concomitant]
     Active Substance: ACYCLOVIR
     Dosage: 1 DF,PRN
     Route: 048
     Dates: start: 20170119
  17. WARFARIN [Concomitant]
     Active Substance: WARFARIN
     Dosage: 1 DF,UNK
     Route: 048
     Dates: start: 20170519
  18. HEPARIN [Concomitant]
     Active Substance: HEPARIN SODIUM
     Dosage: 10 UN/ML
     Route: 042
     Dates: start: 20180121
  19. NORMAL SALINE [Concomitant]
     Active Substance: SODIUM CHLORIDE
     Indication: MEDICATION DILUTION
     Dosage: .9 %,UNK
     Route: 042
     Dates: start: 20170209
  20. HYDROXYZINE [Concomitant]
     Active Substance: HYDROXYZINE HYDROCHLORIDE
     Dosage: 1 DF, PRN
     Route: 048
     Dates: start: 20180603
  21. FABRAZYME [Suspect]
     Active Substance: AGALSIDASE BETA
     Indication: LIPIDOSIS
  22. EPIPEN [Concomitant]
     Active Substance: EPINEPHRINE
     Dosage: 0.3 MG
     Route: 030
     Dates: start: 20180112
  23. PROAIR [SALBUTAMOL SULFATE] [Concomitant]
     Dosage: UNK UNK,PRN
     Route: 055
     Dates: start: 20170414
  24. DIPHENHYDRAMINE. [Concomitant]
     Active Substance: DIPHENHYDRAMINE
     Indication: ANAPHYLACTIC REACTION
     Dosage: 50 MG
     Route: 048
     Dates: start: 20180121
  25. STERILE WATER [Concomitant]
     Active Substance: WATER
     Dosage: 10 ML
     Route: 042
     Dates: start: 20180112

REACTIONS (5)
  - Pain in extremity [Not Recovered/Not Resolved]
  - Bronchitis [Unknown]
  - Upper respiratory tract infection [Unknown]
  - Burning sensation [Not Recovered/Not Resolved]
  - Ear infection [Recovered/Resolved]

NARRATIVE: CASE EVENT DATE: 20171003
